FAERS Safety Report 10284572 (Version 1)
Quarter: 2014Q3

REPORT INFORMATION
  Report Type: Spontaneous
  Country: US (occurrence: None)
  Receive Date: 20140703
  Receipt Date: 20140703
  Transmission Date: 20150326
  Serious: Yes (Hospitalization)
  Sender: FDA-Public Use
  Company Number: None

PATIENT
  Age: 63 Year
  Sex: Male
  Weight: 95 kg

DRUGS (5)
  1. LIPITOR [Concomitant]
     Active Substance: ATORVASTATIN CALCIUM
  2. LOSARTAN [Concomitant]
     Active Substance: LOSARTAN
  3. METFORMIN [Concomitant]
     Active Substance: METFORMIN HYDROCHLORIDE
  4. CISPLATIN. [Suspect]
     Active Substance: CISPLATIN
  5. METOPROLOL [Concomitant]
     Active Substance: METOPROLOL

REACTIONS (12)
  - Presyncope [None]
  - Vomiting [None]
  - Dehydration [None]
  - Dysphagia [None]
  - Dizziness [None]
  - Head injury [None]
  - Skull fracture [None]
  - Oesophagitis [None]
  - Asthenia [None]
  - Subdural haematoma [None]
  - Nausea [None]
  - Fall [None]

NARRATIVE: CASE EVENT DATE: 20140617
